FAERS Safety Report 18237099 (Version 3)
Quarter: 2021Q1

REPORT INFORMATION
  Report Type: Report from Study
  Country: None (occurrence: US)
  Receive Date: 20200907
  Receipt Date: 20210214
  Transmission Date: 20210419
  Serious: Yes (Other)
  Sender: FDA-Public Use
  Company Number: US-ABBVIE-20K-163-3553989-00

PATIENT
  Sex: Female
  Weight: 61.29 kg

DRUGS (1)
  1. RINVOQ [Suspect]
     Active Substance: UPADACITINIB
     Indication: RHEUMATOID ARTHRITIS
     Dosage: ONE TABLET OF 15 MG IN THE EVENING
     Route: 048

REACTIONS (5)
  - Joint swelling [Unknown]
  - Contusion [Unknown]
  - Post procedural haemorrhage [Recovered/Resolved]
  - Dialysis [Unknown]
  - Drug ineffective [Unknown]
